FAERS Safety Report 23705406 (Version 1)
Quarter: 2024Q2

REPORT INFORMATION
  Report Type: Spontaneous
  Country: US (occurrence: US)
  Receive Date: 20240404
  Receipt Date: 20240404
  Transmission Date: 20240716
  Serious: No
  Sender: FDA-Public Use
  Company Number: US-HALEON-2165957

PATIENT

DRUGS (2)
  1. ADVIL TARGETED RELIEF [Suspect]
     Active Substance: CAMPHOR (NATURAL)\CAPSAICIN\MENTHOL\METHYL SALICYLATE
     Indication: Arthralgia
  2. ADVIL TARGETED RELIEF [Suspect]
     Active Substance: CAMPHOR (NATURAL)\CAPSAICIN\MENTHOL\METHYL SALICYLATE
     Route: 065

REACTIONS (1)
  - Drug effect less than expected [Unknown]
